FAERS Safety Report 17084589 (Version 2)
Quarter: 2019Q4

REPORT INFORMATION
  Report Type: Spontaneous
  Country: GB (occurrence: GB)
  Receive Date: 20191127
  Receipt Date: 20191219
  Transmission Date: 20200122
  Serious: Yes (Other)
  Sender: FDA-Public Use
  Company Number: GB-009507513-1911GBR009660

PATIENT
  Sex: Female

DRUGS (3)
  1. NEXPLANON [Suspect]
     Active Substance: ETONOGESTREL
     Indication: CONTRACEPTION
     Dosage: 1 NEXPLANON DEVICE INSERTED IN HER LEFT UPPER ARM
     Route: 059
     Dates: start: 201208, end: 20150816
  2. NEXPLANON [Suspect]
     Active Substance: ETONOGESTREL
     Dosage: A NEW ONE NEXPLANON INSERTED IN THE SAME ARM
     Route: 059
     Dates: start: 20180816
  3. NEXPLANON [Suspect]
     Active Substance: ETONOGESTREL
     Dosage: 1 IMPLANT
     Route: 059
     Dates: start: 20150816, end: 20180816

REACTIONS (5)
  - Pregnancy with implant contraceptive [Recovered/Resolved]
  - Complication associated with device [Not Recovered/Not Resolved]
  - Amenorrhoea [Unknown]
  - Unintended pregnancy [Recovered/Resolved]
  - Device deployment issue [Not Recovered/Not Resolved]

NARRATIVE: CASE EVENT DATE: 201808
